FAERS Safety Report 8160632-4 (Version None)
Quarter: 2012Q1

REPORT INFORMATION
  Report Type: 
  Country: None (occurrence: None)
  Receive Date: 20120223
  Receipt Date: 20120209
  Transmission Date: 20120608
  Serious: Yes (Hospitalization)
  Sender: FDA-Public Use
  Company Number: US-ROCHE-1039130

PATIENT
  Sex: Female

DRUGS (5)
  1. PEGINTERFERON ALFA-2A [Suspect]
     Indication: HEPATITIS C
     Dates: start: 20110210
  2. FOLIC ACID [Concomitant]
     Dates: start: 20110414
  3. COPEGUS [Suspect]
     Indication: HEPATITIS C
     Route: 048
     Dates: start: 20110210
  4. BLINDED BLINDED BMS-791325 (NS5B INHIBITOR) [Suspect]
     Indication: HEPATITIS C
     Dates: start: 20110210
  5. VITAMIN B-12 [Concomitant]
     Dates: start: 20110414

REACTIONS (2)
  - ANAEMIA [None]
  - LEUKOPENIA [None]
